FAERS Safety Report 13552935 (Version 1)
Quarter: 2017Q2

REPORT INFORMATION
  Report Type: Spontaneous
  Country: US (occurrence: US)
  Receive Date: 20170517
  Receipt Date: 20170517
  Transmission Date: 20170830
  Serious: No
  Sender: FDA-Public Use
  Company Number: US-PFIZER INC-2017210773

PATIENT
  Age: 33 Year
  Sex: Female
  Weight: 48.98 kg

DRUGS (3)
  1. LYRICA [Suspect]
     Active Substance: PREGABALIN
     Indication: FIBROMYALGIA
     Dosage: 150 MG, 1X/DAY,(2 LYRICA 75MG TABS IN THE MORNING)
  2. DIAMOX SEQUELS [Concomitant]
     Active Substance: ACETAZOLAMIDE
     Indication: BRAIN OEDEMA
     Dosage: UNK
  3. LYRICA [Suspect]
     Active Substance: PREGABALIN
     Indication: RHEUMATOID ARTHRITIS
     Dosage: 75 MG, 2X/DAY
     Route: 048

REACTIONS (6)
  - Muscle spasms [Unknown]
  - Insomnia [Unknown]
  - Tremor [Unknown]
  - Movement disorder [Unknown]
  - Fibromyalgia [Unknown]
  - Condition aggravated [Unknown]
